FAERS Safety Report 6539076-4 (Version None)
Quarter: 2010Q1

REPORT INFORMATION
  Report Type: 
  Country: None (occurrence: None)
  Receive Date: 20100115
  Receipt Date: 20100106
  Transmission Date: 20100710
  Serious: Yes (Other)
  Sender: FDA-Public Use
  Company Number: PHEH2008US03177

PATIENT
  Sex: Female

DRUGS (36)
  1. ZELNORM [Suspect]
  2. TENORMIN [Concomitant]
     Dosage: 50 MG DAILY
  3. ZOCOR [Concomitant]
     Dosage: 40 MG AT BEDTIME
  4. WELLBUTRIN XL [Concomitant]
     Dosage: 300 MG DAILY
  5. PROTONIX [Concomitant]
     Dosage: 40 MG BEFORE BREAKFAST
  6. ALTACE [Concomitant]
     Dosage: 2.5 MG DAILY
  7. AVANDIA [Concomitant]
     Dosage: 8 MG EVERY MORNING
  8. SEROQUEL [Concomitant]
     Dosage: 100 MG AT BEDTIME
  9. KLONOPIN [Concomitant]
     Dosage: 1 MG AT BEDTIME
  10. COLACE [Concomitant]
     Dosage: 100 MG DAILY
  11. AMARYL [Concomitant]
     Dosage: 2 MG WITH BREAKFAST
  12. LIORESAL [Concomitant]
     Dosage: 10 MG
  13. DETROL [Concomitant]
     Dosage: 4 MG AT BEDTIME
  14. ULTRACET [Concomitant]
     Dosage: 1-2 TABS BY MOUTH EVERY 4 HOURS FOR PAIN
  15. ACTIVASE [Concomitant]
     Dosage: UNK
  16. EMINASE [Concomitant]
     Dosage: 1 PER RECTUM EVERY OTEHR DAY FOR CONSTIPATION
  17. LORTAB [Concomitant]
     Dosage: 7.5 MG 1-2 BY MOUTH EVERY 4 HOURS FOR PAIN
  18. DEMADEX [Concomitant]
     Dosage: 20 MG 1 EVERY DAY
  19. CETIRIZINE HCL [Concomitant]
     Dosage: AS NEEDED
  20. CYCLOBARBITONE [Suspect]
     Dosage: 1 3 TIMES DAILY AS NEEDED
  21. TOPROL-XL [Concomitant]
     Dosage: 50 MG 1 DAILY
  22. LEXAPRO [Concomitant]
     Dosage: 10 MG 1 TAB DAILY
     Dates: start: 20080811
  23. GLUCOPHAGE [Concomitant]
     Dosage: 500 MG 2 TIMES DAILY
     Dates: start: 20080918
  24. COUMADIN [Concomitant]
     Dosage: UNK
  25. CHANTIX [Concomitant]
     Dosage: (0.5 MG X 11 + 1MG X 42 MISC 1 ORAL AS DIRECTED
     Dates: start: 20080918
  26. NICODERM [Concomitant]
     Dosage: 1 PATCH FOR 24 HOURS DAILY X 30 PATCHES
     Dates: start: 20081120
  27. ATACAND [Concomitant]
     Dosage: 32 MG BY MOUTH, TAKE ONE DAILY
     Dates: start: 20080604
  28. DIOVAN [Concomitant]
     Dosage: 320 MG 1 BY MOUTH DAILY
     Dates: start: 20080505
  29. CELEBREX [Concomitant]
     Dosage: UNK
  30. LIPITOR [Concomitant]
     Dosage: 7.5-500 MG 1 TAB EVERY 6 HOURS BY MOUTH AS NEEDED
  31. LIBRAX [Concomitant]
     Dosage: UNK
  32. FLEXERIL [Concomitant]
     Dosage: UNK
  33. LEVBID [Concomitant]
     Dosage: UNK
     Dates: start: 20090209
  34. LOVENOX [Concomitant]
     Dosage: SUBCUTANEOUS
  35. TORSEMIDE [Concomitant]
     Dosage: ORAL
  36. PRILOSEC [Concomitant]
     Dosage: UNK

REACTIONS (17)
  - CEREBROVASCULAR ACCIDENT [None]
  - CEREBROVASCULAR DISORDER [None]
  - CHEST PAIN [None]
  - CHOLECYSTECTOMY [None]
  - DEEP VEIN THROMBOSIS [None]
  - DYSPHAGIA [None]
  - HAEMORRHOIDS [None]
  - HEMIPARESIS [None]
  - HIATUS HERNIA [None]
  - HYPERTENSION [None]
  - HYSTERECTOMY [None]
  - INJURY [None]
  - MALNUTRITION [None]
  - OOPHORECTOMY [None]
  - RASH [None]
  - RECTAL HAEMORRHAGE [None]
  - SLEEP APNOEA SYNDROME [None]
